FAERS Safety Report 11513287 (Version 1)
Quarter: 2015Q3

REPORT INFORMATION
  Report Type: Spontaneous
  Country: US (occurrence: None)
  Receive Date: 20150915
  Receipt Date: 20150915
  Transmission Date: 20151125
  Serious: Yes (Disabling, Other)
  Sender: FDA-Public Use
  Company Number: None

PATIENT
  Age: 41 Year
  Sex: Female
  Weight: 80.29 kg

DRUGS (6)
  1. PYRUVATE [Concomitant]
     Active Substance: PYRUVIC ACID
  2. WELLBUTRIN [Concomitant]
     Active Substance: BUPROPION HYDROCHLORIDE
  3. PAXIL [Concomitant]
     Active Substance: PAROXETINE HYDROCHLORIDE
  4. CALCIUM [Concomitant]
     Active Substance: CALCIUM
  5. MIRENA [Suspect]
     Active Substance: LEVONORGESTREL
     Indication: MENSTRUAL CYCLE MANAGEMENT
     Dosage: LAST 5 YEARS
     Route: 067
     Dates: start: 20150421, end: 20150623
  6. KLONAPIN [Concomitant]

REACTIONS (17)
  - Family stress [None]
  - Impaired work ability [None]
  - Pain [None]
  - Hypersensitivity [None]
  - Emotional disorder [None]
  - Anxiety [None]
  - Urticaria [None]
  - Haemorrhage [None]
  - Burning sensation [None]
  - Irritability [None]
  - Depression [None]
  - Nightmare [None]
  - Quality of life decreased [None]
  - Muscle spasms [None]
  - Asthenia [None]
  - Anorgasmia [None]
  - Poisoning [None]

NARRATIVE: CASE EVENT DATE: 20150421
